FAERS Safety Report 9294200 (Version 2)
Quarter: 2013Q3

REPORT INFORMATION
  Report Type: Spontaneous
  Country: US (occurrence: None)
  Receive Date: 20130514
  Receipt Date: 20130827
  Transmission Date: 20140515
  Serious: Yes (Hospitalization, Other)
  Sender: FDA-Public Use
  Company Number: 2013P1004744

PATIENT
  Age: 12 Year
  Sex: Female
  Weight: 51.26 kg

DRUGS (2)
  1. MYORISAN [Suspect]
     Indication: ACNE
     Route: 048
     Dates: start: 20130221, end: 20130408
  2. GIANVI [Concomitant]

REACTIONS (8)
  - Suicidal ideation [None]
  - Condition aggravated [None]
  - Eczema [None]
  - Lip dry [None]
  - Rash [None]
  - Intentional self-injury [None]
  - Anxiety [None]
  - Affective disorder [None]
